FAERS Safety Report 10038782 (Version 1)
Quarter: 2014Q1

REPORT INFORMATION
  Report Type: Spontaneous
  Country: US (occurrence: None)
  Receive Date: 20140306
  Receipt Date: 20140306
  Transmission Date: 20141002
  Serious: Yes (Hospitalization)
  Sender: FDA-Public Use
  Company Number: 163-21880-13052228

PATIENT
  Age: 60 Year
  Sex: Female
  Weight: 53.25 kg

DRUGS (4)
  1. REVLIMID (LENALIDOMIDE) (25 MILLIGRAM, CAPSULES) [Suspect]
     Indication: PLASMA CELL MYELOMA
     Dosage: 14 IN 21 D
     Route: 048
     Dates: start: 20130326
  2. ONDANSETRON (ONDANSETRON) (UNKNOWN) [Concomitant]
  3. PROMETHAZINE (PROMETHAZINE) (UNKNOWN) [Concomitant]
  4. PANTOPRAZOLE (PANTOPRAZOLE) (UNKNOWN) [Concomitant]

REACTIONS (2)
  - Dyspnoea [None]
  - Back pain [None]
